FAERS Safety Report 19643058 (Version 1)
Quarter: 2021Q3

REPORT INFORMATION
  Report Type: Spontaneous
  Country: DE (occurrence: DE)
  Receive Date: 20210730
  Receipt Date: 20210730
  Transmission Date: 20211014
  Serious: Yes (Death, Life-Threatening, Other)
  Sender: FDA-Public Use
  Company Number: DE-TEVA-2021-DE-1935571

PATIENT
  Age: 55 Year
  Sex: Female
  Weight: 52.4 kg

DRUGS (8)
  1. POSACONAZOLE [Suspect]
     Active Substance: POSACONAZOLE
     Indication: PRODUCT USED FOR UNKNOWN INDICATION
     Dosage: 300 MILLIGRAM DAILY; 300 MG, QD , THERAPY END DATE : ASKU
     Route: 065
     Dates: start: 20210204
  2. CYTARABINE. [Suspect]
     Active Substance: CYTARABINE
     Dosage: 2000 MG/M2
     Route: 065
     Dates: start: 20210322
  3. GILTERITINIB [Suspect]
     Active Substance: GILTERITINIB
     Dosage: 80 MG
     Route: 065
     Dates: start: 20210406
  4. DAUNORUBICIN [Suspect]
     Active Substance: DAUNORUBICIN
     Indication: PRODUCT USED FOR UNKNOWN INDICATION
     Dosage: 60 MG/M2
     Route: 065
     Dates: start: 20210319
  5. DAUNORUBICIN [Suspect]
     Active Substance: DAUNORUBICIN
     Dosage: 60 MG/M2
     Route: 065
     Dates: start: 20210317
  6. ONDANSETRON [Suspect]
     Active Substance: ONDANSETRON
     Indication: PRODUCT USED FOR UNKNOWN INDICATION
     Dosage: 16 MILLIGRAM DAILY; 16 MG, QD
     Route: 065
     Dates: start: 20210317, end: 20210326
  7. GILTERITINIB [Suspect]
     Active Substance: GILTERITINIB
     Indication: PRODUCT USED FOR UNKNOWN INDICATION
     Dosage: 80 MG
     Route: 065
     Dates: start: 20210324
  8. CYTARABINE. [Suspect]
     Active Substance: CYTARABINE
     Indication: PRODUCT USED FOR UNKNOWN INDICATION
     Dosage: 2000 MG/M2
     Route: 065
     Dates: start: 20210317

REACTIONS (13)
  - Death [Fatal]
  - Organ failure [Not Recovered/Not Resolved]
  - Respiratory failure [Not Recovered/Not Resolved]
  - Herpes simplex [Unknown]
  - Atypical pneumonia [Not Recovered/Not Resolved]
  - Electrocardiogram QT prolonged [Not Recovered/Not Resolved]
  - Left atrial hypertrophy [Unknown]
  - Pulmonary oedema [Not Recovered/Not Resolved]
  - Tachycardia [Not Recovered/Not Resolved]
  - Ejection fraction decreased [Not Recovered/Not Resolved]
  - Electrocardiogram ST segment depression [Unknown]
  - Electrocardiogram PR shortened [Unknown]
  - Staphylococcal infection [Not Recovered/Not Resolved]

NARRATIVE: CASE EVENT DATE: 20210324
